FAERS Safety Report 7539940-3 (Version None)
Quarter: 2011Q2

REPORT INFORMATION
  Report Type: 
  Country: None (occurrence: None)
  Receive Date: 20110610
  Receipt Date: 20110601
  Transmission Date: 20111010
  Serious: Yes (Other)
  Sender: FDA-Public Use
  Company Number: RS-ASTRAZENECA-2011SE33901

PATIENT
  Age: 33 Year
  Sex: Female

DRUGS (1)
  1. ZOLADEX [Suspect]
     Indication: BREAST CANCER
     Route: 058
     Dates: start: 20090301

REACTIONS (3)
  - HAEMATURIA [None]
  - BLADDER HYPERTROPHY [None]
  - CYSTOSCOPY [None]
